FAERS Safety Report 24383067 (Version 1)
Quarter: 2024Q3

REPORT INFORMATION
  Report Type: Spontaneous
  Country: US (occurrence: None)
  Receive Date: 20240930
  Receipt Date: 20240930
  Transmission Date: 20241017
  Serious: Yes (Other)
  Sender: Public
  Company Number: None

PATIENT
  Age: 47 Year
  Sex: Male

DRUGS (1)
  1. ICATIBANT [Suspect]
     Active Substance: ICATIBANT ACETATE
     Dosage: 30MG Q6H, MAX 90MG IN 24 HRS?

REACTIONS (7)
  - Gastrointestinal disorder [None]
  - Hereditary angioedema [None]
  - Condition aggravated [None]
  - Stress [None]
  - Road traffic accident [None]
  - Injury [None]
  - Injection site pain [None]

NARRATIVE: CASE EVENT DATE: 20240928
